FAERS Safety Report 15498608 (Version 1)
Quarter: 2018Q4

REPORT INFORMATION
  Report Type: Report from Study
  Country: ES (occurrence: ES)
  Receive Date: 20181015
  Receipt Date: 20181015
  Transmission Date: 20190205
  Serious: Yes (Death, Other)
  Sender: FDA-Public Use
  Company Number: ES-ROCHE-2197087

PATIENT

DRUGS (7)
  1. VEMURAFENIB. [Suspect]
     Active Substance: VEMURAFENIB
     Indication: NEOPLASM MALIGNANT
     Route: 065
  2. IPILIMUMAB [Suspect]
     Active Substance: IPILIMUMAB
     Indication: NEOPLASM MALIGNANT
     Route: 065
  3. TRASTUZUMAB. [Suspect]
     Active Substance: TRASTUZUMAB
     Indication: NEOPLASM MALIGNANT
     Route: 065
  4. NIVOLUMAB [Suspect]
     Active Substance: NIVOLUMAB
     Indication: NEOPLASM MALIGNANT
     Route: 065
  5. PEMBROLIZUMAB. [Suspect]
     Active Substance: PEMBROLIZUMAB
     Indication: NEOPLASM MALIGNANT
     Route: 065
  6. COBIMETINIB. [Suspect]
     Active Substance: COBIMETINIB
     Indication: NEOPLASM MALIGNANT
     Route: 065
  7. CATUMAXOMAB [Suspect]
     Active Substance: CATUMAXOMAB
     Indication: NEOPLASM MALIGNANT
     Route: 065

REACTIONS (16)
  - Glomerulonephritis [Unknown]
  - Autoimmune thyroiditis [Unknown]
  - Sjogren^s syndrome [Unknown]
  - Autoimmune arthritis [Unknown]
  - Autoimmune pancreatitis [Unknown]
  - Autoimmune hepatitis [Unknown]
  - Autoimmune colitis [Unknown]
  - Lymphocytic hypophysitis [Unknown]
  - Cardiomyopathy [Unknown]
  - Vasculitis [Unknown]
  - Autoimmune disorder [Fatal]
  - Guillain-Barre syndrome [Unknown]
  - Cholangitis sclerosing [Unknown]
  - Addison^s disease [Unknown]
  - Autoimmune lung disease [Fatal]
  - Sarcoidosis [Unknown]
